FAERS Safety Report 4971725-4 (Version None)
Quarter: 2006Q2

REPORT INFORMATION
  Report Type: 
  Country: None (occurrence: None)
  Receive Date: 20060413
  Receipt Date: 20060404
  Transmission Date: 20061013
  Serious: Yes (Other)
  Sender: FDA-Public Use
  Company Number: PHEH2006US04407

PATIENT
  Sex: Female

DRUGS (9)
  1. SANDOSTATIN [Suspect]
     Indication: CARCINOID SYNDROME
     Dosage: 50MCG QD
     Dates: start: 19991001
  2. SANDOSTATIN [Suspect]
     Dosage: DOSE TITRATED 130MCG BID, 180MCG QPM
  3. CARDIZEM [Concomitant]
     Indication: ARRHYTHMIA
     Dosage: 180 MG, UNK
  4. LEVOTHYROXINE SODIUM [Concomitant]
     Indication: HYPOTHYROIDISM
     Dosage: 0.125 MG, QD
  5. CYTOMEL [Concomitant]
     Indication: HYPOTHYROIDISM
     Dosage: 5MCG QD
  6. CYTOMEL [Concomitant]
     Dosage: 5MCG BID
  7. ALTACE [Concomitant]
     Indication: BLOOD PRESSURE MANAGEMENT
     Dosage: 10 MG, BID
  8. COZAAR [Concomitant]
     Indication: BLOOD PRESSURE MANAGEMENT
     Dosage: 50 MG, QD
  9. ZOCOR [Concomitant]
     Dosage: 40 MG, QD

REACTIONS (17)
  - ALOPECIA [None]
  - APPENDICECTOMY [None]
  - BIOPSY [None]
  - BLOOD THYROID STIMULATING HORMONE DECREASED [None]
  - DEHYDRATION [None]
  - DIARRHOEA [None]
  - FATIGUE [None]
  - FLUID RETENTION [None]
  - FLUSHING [None]
  - HEADACHE [None]
  - HYSTERECTOMY [None]
  - LIVER FUNCTION TEST ABNORMAL [None]
  - MALABSORPTION FROM INJECTION SITE [None]
  - SWELLING [None]
  - THIRST DECREASED [None]
  - URINARY TRACT INFECTION [None]
  - URTICARIA [None]
